FAERS Safety Report 5155693-0 (Version None)
Quarter: 2006Q4

REPORT INFORMATION
  Report Type: 
  Country: None (occurrence: None)
  Receive Date: 20061114
  Receipt Date: 20061027
  Transmission Date: 20070319
  Serious: Yes (Hospitalization)
  Sender: FDA-Public Use
  Company Number: US-2006-032796

PATIENT
  Age: 54 Year
  Sex: Female

DRUGS (1)
  1. BETASERON [Suspect]
     Indication: MULTIPLE SCLEROSIS
     Dosage: 8 MIU, EVERY 2D, SUBCUTANEOUS
     Route: 058
     Dates: start: 20060130, end: 20060529

REACTIONS (5)
  - APPENDICECTOMY [None]
  - COLECTOMY [None]
  - DIVERTICULITIS [None]
  - IMPAIRED HEALING [None]
  - OOPHORECTOMY [None]
